FAERS Safety Report 7002340-9 (Version None)
Quarter: 2010Q3

REPORT INFORMATION
  Report Type: 
  Country: None (occurrence: None)
  Receive Date: 20100920
  Receipt Date: 20080301
  Transmission Date: 20110219
  Serious: Yes (Death, Other)
  Sender: FDA-Public Use
  Company Number: US-ASTRAZENECA-2006UW21619

PATIENT
  Age: 327 Month
  Sex: Male
  Weight: 147.4 kg

DRUGS (27)
  1. SEROQUEL [Suspect]
     Indication: DEPRESSION
     Dosage: 100 TO 300 MG
     Route: 048
     Dates: start: 20000119
  2. SEROQUEL [Suspect]
     Route: 048
     Dates: start: 20030101, end: 20030101
  3. RISPERDAL [Concomitant]
     Dates: start: 20030306
  4. ALTACE [Concomitant]
     Dates: start: 20030306
  5. ZAROXOLYN [Concomitant]
  6. LANOXIN [Concomitant]
     Dates: start: 20030306
  7. TOPROL-XL [Concomitant]
     Dates: start: 20030306
  8. FUROSEMIDE [Concomitant]
     Dates: start: 20030411
  9. DEPAKOTE [Concomitant]
     Dates: start: 20030610
  10. DIOVAN [Concomitant]
  11. POTASSIUM CHLORIDE [Concomitant]
  12. GLIPIZIDE [Concomitant]
  13. AVANDIA [Concomitant]
  14. HUMULIN R [Concomitant]
  15. ZOLOFT [Concomitant]
  16. AMIODARONE HCL [Concomitant]
  17. NITROLINGUAL [Concomitant]
  18. COLCHICINE [Concomitant]
  19. TRIHEXYPHENIDYL HCL [Concomitant]
  20. CLONAZEPAM [Concomitant]
  21. ZYPREXA [Concomitant]
  22. ALBUTEROL [Concomitant]
  23. SEREVENT [Concomitant]
  24. COMBIVENT [Concomitant]
  25. LORAZEPAM [Concomitant]
  26. FAMOTIDINE [Concomitant]
     Route: 048
     Dates: start: 20030424
  27. PROMETHAZINE [Concomitant]
     Dates: start: 20030424

REACTIONS (11)
  - CARDIAC FAILURE CONGESTIVE [None]
  - CARDIOMYOPATHY [None]
  - CHEST PAIN [None]
  - COUGH [None]
  - DIABETES MELLITUS [None]
  - DYSPNOEA [None]
  - HYPERTENSION [None]
  - OEDEMA [None]
  - PNEUMONIA [None]
  - PYREXIA [None]
  - VOMITING [None]
